FAERS Safety Report 7352379-9 (Version None)
Quarter: 2011Q1

REPORT INFORMATION
  Report Type: 
  Country: None (occurrence: None)
  Receive Date: 20110309
  Receipt Date: 20110309
  Transmission Date: 20110831
  Serious: Yes (Life-Threatening, Hospitalization, Other)
  Sender: FDA-Public Use
  Company Number: None

PATIENT
  Sex: Female
  Weight: 52.6173 kg

DRUGS (1)
  1. AVASTIN [Suspect]
     Indication: BREAST CANCER METASTATIC
     Dosage: AVASTIN TWICE MONTHLY IV DRIP
     Route: 041
     Dates: start: 20101001, end: 20101201

REACTIONS (3)
  - FATIGUE [None]
  - ONYCHOMADESIS [None]
  - CARDIAC FAILURE [None]
